FAERS Safety Report 22246790 (Version 1)
Quarter: 2023Q2

REPORT INFORMATION
  Report Type: Spontaneous
  Country: GB (occurrence: GB)
  Receive Date: 20230424
  Receipt Date: 20230424
  Transmission Date: 20230721
  Serious: Yes (Other)
  Sender: FDA-Public Use
  Company Number: None

PATIENT
  Age: 88 Year
  Sex: Female
  Weight: 71 kg

DRUGS (18)
  1. CLARITHROMYCIN [Suspect]
     Active Substance: CLARITHROMYCIN
     Indication: Product used for unknown indication
     Route: 048
     Dates: start: 20220426
  2. CAPSAICIN [Concomitant]
     Active Substance: CAPSAICIN
     Indication: Product used for unknown indication
     Dosage: 4 DOSAGE FORMS DAILY; APPLY INSTEAD OF IBUPROFEN.
     Dates: start: 20220117
  3. CO-AMILOFRUSE [Concomitant]
     Active Substance: AMILORIDE\FUROSEMIDE
     Indication: Product used for unknown indication
     Dosage: 1 DOSAGE FORMS DAILY; MORNING
     Dates: start: 20201207, end: 20230110
  4. DOCUSATE SODIUM [Concomitant]
     Active Substance: DOCUSATE SODIUM
     Indication: Product used for unknown indication
     Dosage: 4 DOSAGE FORMS DAILY; FINE TO TAKE WITH SENNA;
     Dates: start: 20230308
  5. LANOLIN\LIGHT MINERAL OIL\PARAFFIN [Concomitant]
     Active Substance: LANOLIN\LIGHT MINERAL OIL\PARAFFIN
     Indication: Product used for unknown indication
     Dosage: APPLY TO SKIN FREQUENTLY AND LIBERALLY, AS OFTE..
     Route: 061
     Dates: start: 20201116
  6. EURAX [Concomitant]
     Active Substance: CROTAMITON
     Indication: Product used for unknown indication
     Dosage: APPLY TWO OR THREE TIMES A DAY
     Dates: start: 20230403, end: 20230404
  7. FERROUS SULFATE [Concomitant]
     Active Substance: FERROUS SULFATE
     Indication: Product used for unknown indication
     Dosage: 3 DOSAGE FORMS DAILY; NOT AS SAME
     Dates: start: 20220901
  8. FEXOFENADINE [Concomitant]
     Active Substance: FEXOFENADINE HYDROCHLORIDE
     Indication: Product used for unknown indication
     Dosage: 1 DOSAGE FORMS DAILY;
     Dates: start: 20211206
  9. FUROSEMIDE [Concomitant]
     Active Substance: FUROSEMIDE
     Indication: Product used for unknown indication
     Dosage: 2 DOSAGE FORMS DAILY; MORNING
     Dates: start: 20230110
  10. GLYCERIN [Concomitant]
     Active Substance: GLYCERIN
     Indication: Product used for unknown indication
     Dosage: INSERT
     Dates: start: 20230113, end: 20230116
  11. HYDROCORTISONE [Concomitant]
     Active Substance: HYDROCORTISONE
     Indication: Product used for unknown indication
     Dosage: 2 DOSAGE FORMS DAILY; APPLY THINLY TO THE AFFECTED AREA(S)
     Dates: start: 20230308, end: 20230322
  12. HYDROMOL EMOLLIENT [Concomitant]
     Indication: Product used for unknown indication
     Dosage: APPLY TO SKIN FREQUENTLY AND LIBERALLY, AS OFTE
     Route: 061
     Dates: start: 20220922
  13. IBUPROFEN [Concomitant]
     Active Substance: IBUPROFEN
     Indication: Product used for unknown indication
     Dosage: APPLY 3-4 TIMES/DAY TO AFFECTED AREA
     Dates: start: 20230324
  14. LEVOTHYROXINE [Concomitant]
     Active Substance: LEVOTHYROXINE
     Indication: Product used for unknown indication
     Dosage: 1 DOSAGE FORMS DAILY; MORNING
     Dates: start: 20170502
  15. MORPHINE SULFATE [Concomitant]
     Active Substance: MORPHINE SULFATE
     Indication: Product used for unknown indication
     Dosage: 2.5 MLS - 5MLS UP TO EVERY FOUR HOURS AS RE...
     Dates: start: 20220825
  16. ACETAMINOPHEN [Concomitant]
     Active Substance: ACETAMINOPHEN
     Indication: Product used for unknown indication
     Dosage: TAKE ONE OR TWO TABLETS EVERY 4 TO 6 HOURS WHEN...
     Dates: start: 20180604
  17. ALBUTEROL [Concomitant]
     Active Substance: ALBUTEROL
     Indication: Product used for unknown indication
     Route: 055
     Dates: start: 20180220
  18. SENNA [Concomitant]
     Active Substance: SENNA LEAF\SENNOSIDES\SENNOSIDES A AND B
     Indication: Product used for unknown indication
     Dosage: 2 DOSAGE FORMS DAILY; NIGHT
     Dates: start: 20200806

REACTIONS (3)
  - Pruritus [Unknown]
  - Rash maculo-papular [Unknown]
  - Malaise [Unknown]
